FAERS Safety Report 5876021-9 (Version None)
Quarter: 2008Q3

REPORT INFORMATION
  Report Type: 
  Country: None (occurrence: None)
  Receive Date: 20080829
  Receipt Date: 20080829
  Transmission Date: 20090109
  Serious: Yes (Hospitalization)
  Sender: FDA-Public Use
  Company Number: None

PATIENT
  Sex: Female
  Weight: 63.9572 kg

DRUGS (1)
  1. DEEP HEATING EXTRA STRENGTH    THE MENTHOLATUM CO.INC. [Suspect]
     Indication: MYALGIA
     Dosage: (DURATION: ONE APPLICATION ONLY)
     Dates: start: 20080726, end: 20080726

REACTIONS (3)
  - CAUSTIC INJURY [None]
  - ERYTHEMA [None]
  - SCAR [None]
